FAERS Safety Report 6596626-X (Version None)
Quarter: 2010Q1

REPORT INFORMATION
  Report Type: 
  Country: None (occurrence: None)
  Receive Date: 20100223
  Receipt Date: 20100211
  Transmission Date: 20100710
  Serious: Yes (Other)
  Sender: FDA-Public Use
  Company Number: PT-PFIZER INC-2010018125

PATIENT
  Age: 60 Year
  Sex: Female

DRUGS (1)
  1. FARMORUBICIN [Suspect]
     Route: 042

REACTIONS (4)
  - BLISTER [None]
  - INFUSION SITE EXTRAVASATION [None]
  - INJECTION SITE ERYTHEMA [None]
  - INJECTION SITE PAIN [None]
